FAERS Safety Report 7101858-8 (Version None)
Quarter: 2010Q4

REPORT INFORMATION
  Report Type: 
  Country: None (occurrence: None)
  Receive Date: 20101108
  Receipt Date: 20101029
  Transmission Date: 20110411
  Serious: Yes (Other)
  Sender: FDA-Public Use
  Company Number: FR-2010-2413

PATIENT
  Sex: Male

DRUGS (11)
  1. NAVELBINE [Suspect]
     Indication: LUNG NEOPLASM MALIGNANT
     Dosage: 25 MG/M2 IV
     Route: 042
     Dates: start: 20100816, end: 20100816
  2. CISPLATIN [Suspect]
     Indication: PULMONARY EMBOLISM
     Dosage: 100 MG/M2
     Dates: start: 20100816, end: 20100816
  3. ALLOPURINOL [Concomitant]
  4. SEROPRAM. MFR: NOT SPECIFIED [Concomitant]
  5. XANAX. MFR: NOT SPECIFIED [Concomitant]
  6. LAROXYL. MFR: NOT SPECIFIED [Concomitant]
  7. NISISCO [Concomitant]
  8. NOVONORM. MFR: NOT SPECIFIED [Concomitant]
  9. GLUCOPHAGE. MFR: NOT SPECIFIED [Concomitant]
  10. CADUET. MFR: NOT SPECIFIED [Concomitant]
  11. OGAST [Concomitant]

REACTIONS (4)
  - HAEMODIALYSIS [None]
  - INFECTION [None]
  - RENAL FAILURE ACUTE [None]
  - RENAL TUBULAR NECROSIS [None]
